FAERS Safety Report 22219181 (Version 1)
Quarter: 2023Q2

REPORT INFORMATION
  Report Type: Spontaneous
  Country: BE (occurrence: BE)
  Receive Date: 20230417
  Receipt Date: 20230417
  Transmission Date: 20230721
  Serious: Yes (Life-Threatening, Other)
  Sender: FDA-Public Use
  Company Number: BE-Accord-301232

PATIENT
  Age: 25 Year
  Sex: Female
  Weight: 76 kg

DRUGS (3)
  1. PACLITAXEL [Suspect]
     Active Substance: PACLITAXEL
     Dosage: 400 MG, EVERY 3 WEEKS
     Dates: start: 20230127, end: 20230127
  2. METHYLPREDNISOLONE ACETATE [Concomitant]
     Active Substance: METHYLPREDNISOLONE ACETATE
     Dosage: 48 MG
     Route: 048
     Dates: start: 20230127
  3. NOBITEN [NEBIVOLOL] [Concomitant]
     Route: 048
     Dates: start: 2010

REACTIONS (2)
  - Dyspnoea [Recovered/Resolved]
  - Face oedema [Recovered/Resolved]

NARRATIVE: CASE EVENT DATE: 20230127
